FAERS Safety Report 5096856-2 (Version None)
Quarter: 2006Q3

REPORT INFORMATION
  Report Type: 
  Country: None (occurrence: None)
  Receive Date: 20060831
  Receipt Date: 20060831
  Transmission Date: 20061208
  Serious: Yes (Hospitalization)
  Sender: FDA-Public Use
  Company Number: None

PATIENT
  Sex: Male
  Weight: 65.6 kg

DRUGS (6)
  1. ERBITUX [Suspect]
     Indication: HYPOPHARYNGEAL CANCER
     Dosage: 435 MG
     Dates: end: 20060817
  2. ERBITUX [Suspect]
     Indication: OROPHARYNGEAL CANCER STAGE UNSPECIFIED
     Dosage: 435 MG
     Dates: end: 20060817
  3. CISPLATIN [Suspect]
     Dosage: 176 MG
     Dates: end: 20060725
  4. ALPRAZOLAM [Concomitant]
  5. DILAUDID [Concomitant]
  6. FENANYL [Concomitant]

REACTIONS (4)
  - DEHYDRATION [None]
  - NAUSEA [None]
  - RESPIRATORY RATE INCREASED [None]
  - VOMITING [None]
